FAERS Safety Report 19305219 (Version 1)
Quarter: 2021Q2

REPORT INFORMATION
  Report Type: Spontaneous
  Country: BR (occurrence: BR)
  Receive Date: 20210525
  Receipt Date: 20210525
  Transmission Date: 20210717
  Serious: Yes (Other)
  Sender: FDA-Public Use
  Company Number: BR-ABBVIE-21K-020-3919951-00

PATIENT
  Age: 78 Year
  Sex: Female
  Weight: 58 kg

DRUGS (11)
  1. REGULAR INSULIN NOVO NORDISK [Concomitant]
     Active Substance: INSULIN HUMAN
     Indication: DIABETES MELLITUS
     Dosage: IN THE MORNING BEFORE LUNCH AND AT NIGHT
     Route: 058
     Dates: start: 2013
  2. AZATHIOPRINE. [Concomitant]
     Active Substance: AZATHIOPRINE
     Indication: CROHN^S DISEASE
     Route: 048
     Dates: start: 202005
  3. NPH INSULIN [Concomitant]
     Active Substance: INSULIN BEEF
     Indication: DIABETES MELLITUS
     Dosage: 38 IN THE MORNING, 36 AT NIGHT
     Route: 058
     Dates: start: 2013
  4. PROLIVE [Concomitant]
     Indication: DYSBIOSIS
     Route: 048
  5. AAS [Concomitant]
     Active Substance: ASPIRIN
     Indication: PRODUCT USED FOR UNKNOWN INDICATION
     Dosage: UNKNOWN
  6. EZETIMIBE. [Concomitant]
     Active Substance: EZETIMIBE
     Indication: BLOOD CHOLESTEROL
     Dosage: AT NIGHT
     Route: 048
     Dates: start: 202011
  7. HUMIRA [Suspect]
     Active Substance: ADALIMUMAB
     Indication: CROHN^S DISEASE
     Dosage: UNSPECIFIC DOSE
     Route: 058
     Dates: start: 2011
  8. METOPROLOL SUCCINATE. [Concomitant]
     Active Substance: METOPROLOL SUCCINATE
     Indication: DIABETES MELLITUS
     Route: 048
     Dates: start: 202005
  9. NESINA [Concomitant]
     Active Substance: ALOGLIPTIN BENZOATE
     Indication: DIABETES MELLITUS
     Dosage: IN THE MORNING
     Route: 048
     Dates: start: 202005
  10. HUMIRA [Suspect]
     Active Substance: ADALIMUMAB
     Dosage: UNSPECIFIC DOSE
     Route: 058
     Dates: start: 20210519
  11. ENALAPRIL [Concomitant]
     Active Substance: ENALAPRIL
     Indication: HYPERTENSION
     Dosage: 1 IN THE MORNING, 1 AT NIGHT
     Route: 048

REACTIONS (9)
  - Weight decreased [Recovered/Resolved]
  - Flatulence [Unknown]
  - Hepatic steatosis [Not Recovered/Not Resolved]
  - Diarrhoea [Recovered/Resolved]
  - Feeling abnormal [Recovered/Resolved]
  - Diabetes mellitus inadequate control [Not Recovered/Not Resolved]
  - Abdominal pain upper [Recovered/Resolved]
  - Carotid artery occlusion [Not Recovered/Not Resolved]
  - Pain [Recovered/Resolved]

NARRATIVE: CASE EVENT DATE: 20200509
